FAERS Safety Report 6376333-9 (Version None)
Quarter: 2009Q3

REPORT INFORMATION
  Report Type: 
  Country: None (occurrence: None)
  Receive Date: 20090922
  Receipt Date: 20090922
  Transmission Date: 20100115
  Serious: Yes (Death)
  Sender: FDA-Public Use
  Company Number: None

PATIENT
  Age: 76 Year
  Sex: Male
  Weight: 56.6996 kg

DRUGS (2)
  1. SINGULAIR [Suspect]
     Indication: CHRONIC OBSTRUCTIVE PULMONARY DISEASE
     Dosage: DAILY PO
     Route: 048
     Dates: start: 20000101, end: 20081220
  2. LEVAQUIN [Suspect]
     Indication: PNEUMONIA
     Dosage: DAILY IV OFF AND ON
     Route: 042
     Dates: start: 20051206, end: 20081217

REACTIONS (2)
  - RHEUMATOID ARTHRITIS [None]
  - ROTATOR CUFF SYNDROME [None]
